FAERS Safety Report 5612044-2 (Version None)
Quarter: 2008Q1

REPORT INFORMATION
  Report Type: 
  Country: None (occurrence: None)
  Receive Date: 20080204
  Receipt Date: 20080125
  Transmission Date: 20080703
  Serious: Yes (Other)
  Sender: FDA-Public Use
  Company Number: PHEH2008US01229

PATIENT
  Age: 11 Year
  Sex: Male

DRUGS (1)
  1. FOCALIN XR [Suspect]
     Dosage: 15 MG, UNK
     Dates: start: 20070701

REACTIONS (8)
  - ANOREXIA [None]
  - DECREASED INTEREST [None]
  - DEPRESSION [None]
  - DIZZINESS [None]
  - DRY MOUTH [None]
  - INSOMNIA [None]
  - NERVOUSNESS [None]
  - WEIGHT DECREASED [None]
